FAERS Safety Report 17275777 (Version 2)
Quarter: 2020Q1

REPORT INFORMATION
  Report Type: Spontaneous
  Country: CN (occurrence: CN)
  Receive Date: 20200116
  Receipt Date: 20200128
  Transmission Date: 20200409
  Serious: Yes (Hospitalization, Other)
  Sender: FDA-Public Use
  Company Number: CN-BRISTOL-MYERS SQUIBB COMPANY-BMS-2020-002237

PATIENT
  Age: 53 Year
  Sex: Male

DRUGS (8)
  1. CEFOPERAZONE;SULBACTAM [Suspect]
     Active Substance: CEFOPERAZONE\SULBACTAM
     Indication: ANTIBIOTIC THERAPY
     Dosage: 3.0 Q8H DRUG WAS ADMINSITERED FOR A DURATION OF 3 DAYS
     Route: 042
     Dates: start: 20180904, end: 20180907
  2. CEFOPERAZONE;SULBACTAM [Suspect]
     Active Substance: CEFOPERAZONE\SULBACTAM
     Indication: PRODUCT USED FOR UNKNOWN INDICATION
     Dosage: DRUG WAS ADMINISTERED FOR 6 DAYS
     Route: 042
     Dates: start: 20180621, end: 20180627
  3. AZTREONAM. [Suspect]
     Active Substance: AZTREONAM
     Indication: ANTIBIOTIC THERAPY
     Dosage: UNK
     Route: 042
     Dates: start: 20180701
  4. AMOXICILLIN. [Suspect]
     Active Substance: AMOXICILLIN
     Indication: LIMB INJURY
     Route: 048
     Dates: start: 201805
  5. CILASTATIN;IMIPENEM [Suspect]
     Active Substance: CILASTATIN SODIUM\IMIPENEM
     Indication: ANTIBIOTIC THERAPY
     Route: 042
     Dates: start: 20180724
  6. CEFOPERAZONE;SULBACTAM [Suspect]
     Active Substance: CEFOPERAZONE\SULBACTAM
     Indication: PRODUCT USED FOR UNKNOWN INDICATION
     Dosage: 3.0 Q8H
     Route: 042
     Dates: end: 20180907
  7. CEFTIZOXIME [Suspect]
     Active Substance: CEFTIZOXIME
     Indication: ANTIBIOTIC THERAPY
     Dosage: 2.0 Q12H
     Route: 042
     Dates: start: 20180719, end: 20180723
  8. AMOXICILLIN;SULBACTAM [Suspect]
     Active Substance: AMOXICILLIN\SULBACTAM
     Indication: ANTIBIOTIC THERAPY
     Dosage: FOR A DURATION OF 3 DAYS AT A INTERVAL OF 12 HOURS
     Route: 042
     Dates: start: 20180619, end: 20180621

REACTIONS (1)
  - Interstitial lung disease [Recovering/Resolving]

NARRATIVE: CASE EVENT DATE: 201806
